FAERS Safety Report 9628819 (Version 2)
Quarter: 2014Q1

REPORT INFORMATION
  Report Type: Spontaneous
  Country: US (occurrence: US)
  Receive Date: 20131017
  Receipt Date: 20140116
  Transmission Date: 20141002
  Serious: Yes (Life-Threatening, Hospitalization, Disabling, Other)
  Sender: FDA-Public Use
  Company Number: US-ELI_LILLY_AND_COMPANY-US201310003127

PATIENT
  Sex: Male

DRUGS (7)
  1. ZYPREXA [Suspect]
     Indication: DEPRESSION
     Dosage: 1 DF, UNKNOWN
     Route: 065
     Dates: start: 2000, end: 2000
  2. LISINOPRIL [Concomitant]
     Indication: PRODUCT USED FOR UNKNOWN INDICATION
     Dosage: 5 MG, BID
     Route: 065
  3. NEURONTIN [Concomitant]
     Indication: PRODUCT USED FOR UNKNOWN INDICATION
     Dosage: 300 MG, QD
     Route: 065
  4. NITROGLYCERIN [Concomitant]
     Indication: PRODUCT USED FOR UNKNOWN INDICATION
     Dosage: 1 DF, UNKNOWN
     Route: 065
  5. DIAZEPAM [Concomitant]
     Indication: NERVOUSNESS
     Dosage: 1 DF, UNKNOWN
     Route: 065
  6. SOMA [Concomitant]
     Indication: BACK PAIN
     Dosage: 1 DF, UNKNOWN
     Route: 065
  7. HYDROCODONE [Concomitant]
     Indication: BACK PAIN
     Dosage: 1 DF, UNKNOWN
     Route: 065

REACTIONS (17)
  - Myocardial infarction [Unknown]
  - Type 1 diabetes mellitus [Unknown]
  - Cardiac disorder [Not Recovered/Not Resolved]
  - Arrhythmia [Unknown]
  - Multi-organ disorder [Unknown]
  - Metabolic disorder [Unknown]
  - Nervous system disorder [Not Recovered/Not Resolved]
  - Poor peripheral circulation [Unknown]
  - Neuropathy peripheral [Not Recovered/Not Resolved]
  - Wound [Unknown]
  - Sensory disturbance [Not Recovered/Not Resolved]
  - Sensory loss [Not Recovered/Not Resolved]
  - Feeling abnormal [Unknown]
  - Pain [Not Recovered/Not Resolved]
  - Malaise [Not Recovered/Not Resolved]
  - Injury [Unknown]
  - Off label use [Unknown]
